FAERS Safety Report 4289238-4 (Version None)
Quarter: 2004Q1

REPORT INFORMATION
  Report Type: 
  Country: None (occurrence: None)
  Receive Date: 20040203
  Receipt Date: 20000328
  Transmission Date: 20041129
  Serious: Yes (Other)
  Sender: FDA-Public Use
  Company Number: 2000-043

PATIENT
  Age: 41 Year
  Sex: Female

DRUGS (2)
  1. DORYX [Suspect]
     Dosage: 200 MG BID ORAL
     Route: 048
     Dates: start: 19970729, end: 19970804
  2. REMERON [Concomitant]

REACTIONS (1)
  - DIZZINESS [None]
